FAERS Safety Report 17352189 (Version 1)
Quarter: 2020Q1

REPORT INFORMATION
  Report Type: Spontaneous
  Country: US (occurrence: US)
  Receive Date: 20200130
  Receipt Date: 20200130
  Transmission Date: 20200409
  Serious: Yes (Other)
  Sender: FDA-Public Use
  Company Number: US-COOPERSURGICAL, INC.-US-2020CPS000040

PATIENT
  Age: 17 Year
  Sex: Female
  Weight: 53.97 kg

DRUGS (1)
  1. PARAGARD T 380A [Suspect]
     Active Substance: COPPER
     Indication: CONTRACEPTION
     Dosage: UNK
     Route: 015
     Dates: start: 20180517, end: 20200107

REACTIONS (4)
  - Pregnancy with contraceptive device [Recovered/Resolved]
  - Sensation of foreign body [Recovered/Resolved]
  - Drug ineffective [Recovered/Resolved]
  - Abortion spontaneous [Recovered/Resolved]

NARRATIVE: CASE EVENT DATE: 201912
